FAERS Safety Report 6993888-1 (Version None)
Quarter: 2010Q3

REPORT INFORMATION
  Report Type: 
  Country: None (occurrence: None)
  Receive Date: 20100917
  Receipt Date: 20100421
  Transmission Date: 20110219
  Serious: Yes (Life-Threatening)
  Sender: FDA-Public Use
  Company Number: US-ASTRAZENECA-2010SE13576

PATIENT
  Age: 20197 Day
  Sex: Male

DRUGS (2)
  1. SEROQUEL XR [Suspect]
     Indication: DEPRESSION
     Route: 048
     Dates: start: 20100302, end: 20100309
  2. WELLBUTRIN [Concomitant]
     Route: 065

REACTIONS (1)
  - SUICIDAL IDEATION [None]
